FAERS Safety Report 22244854 (Version 4)
Quarter: 2025Q2

REPORT INFORMATION
  Report Type: Spontaneous
  Country: JP (occurrence: JP)
  Receive Date: 20230424
  Receipt Date: 20250618
  Transmission Date: 20250717
  Serious: Yes (Other)
  Sender: GLAXOSMITHKLINE
  Company Number: JP-GLAXOSMITHKLINE-JP2023JPN056235

PATIENT
  Age: 29 Year
  Sex: Female

DRUGS (6)
  1. BENLYSTA [Suspect]
     Active Substance: BELIMUMAB
     Indication: Systemic lupus erythematosus
  2. BENLYSTA [Suspect]
     Active Substance: BELIMUMAB
     Indication: Systemic lupus erythematosus
  3. HYDROXYCHLOROQUINE [Concomitant]
     Active Substance: HYDROXYCHLOROQUINE
     Indication: Systemic lupus erythematosus
  4. PREDNISOLONE [Concomitant]
     Active Substance: PREDNISOLONE
     Indication: Systemic lupus erythematosus
     Dosage: 5 MG, 1D
  5. PREDNISOLONE [Concomitant]
     Active Substance: PREDNISOLONE
     Dosage: 3 MG, 1D
  6. METHOTREXATE [Concomitant]
     Active Substance: METHOTREXATE
     Indication: Systemic lupus erythematosus
     Dosage: 12 MG, WE

REACTIONS (9)
  - Anxiety [Recovered/Resolved]
  - Irritability [Recovered/Resolved]
  - CSF protein increased [Recovering/Resolving]
  - Interleukin level increased [Recovering/Resolving]
  - Anti-neuronal antibody positive [Recovering/Resolving]
  - Anti-NMDA antibody positive [Recovering/Resolving]
  - Psychiatric symptom [Unknown]
  - Nervous system disorder [Unknown]
  - Blood brain barrier defect [Unknown]
